FAERS Safety Report 17660260 (Version 1)
Quarter: 2020Q2

REPORT INFORMATION
  Report Type: Spontaneous
  Country: US (occurrence: US)
  Receive Date: 20200410
  Receipt Date: 20200410
  Transmission Date: 20200713
  Serious: Yes (Hospitalization)
  Sender: FDA-Public Use
  Company Number: None

PATIENT
  Age: 80 Year
  Sex: Female
  Weight: 46.72 kg

DRUGS (9)
  1. PREDNISONE. [Suspect]
     Active Substance: PREDNISONE
     Indication: CHRONIC OBSTRUCTIVE PULMONARY DISEASE
     Dosage: ?          QUANTITY:4 UNK - UNKNOWN;?
     Route: 048
     Dates: start: 20190619, end: 20190630
  2. ALBUTEROL. [Concomitant]
     Active Substance: ALBUTEROL
  3. VENTOLIN [Concomitant]
     Active Substance: ALBUTEROL SULFATE
  4. PREDNISONE. [Suspect]
     Active Substance: PREDNISONE
     Indication: SINUSITIS
     Dosage: ?          QUANTITY:4 UNK - UNKNOWN;?
     Route: 048
     Dates: start: 20190619, end: 20190630
  5. FLUTICASONE. [Concomitant]
     Active Substance: FLUTICASONE
  6. GABAPENTIN. [Concomitant]
     Active Substance: GABAPENTIN
  7. SPIRIVA [Concomitant]
     Active Substance: TIOTROPIUM BROMIDE MONOHYDRATE
  8. ADVAIR HFA [Concomitant]
     Active Substance: FLUTICASONE PROPIONATE\SALMETEROL XINAFOATE
  9. CETIRIZINE HYDROCHLORIDE. [Concomitant]
     Active Substance: CETIRIZINE HYDROCHLORIDE

REACTIONS (2)
  - Substance-induced psychotic disorder [None]
  - Weight decreased [None]

NARRATIVE: CASE EVENT DATE: 20190619
